FAERS Safety Report 9473742 (Version 2)
Quarter: 2013Q3

REPORT INFORMATION
  Report Type: Spontaneous
  Country: US (occurrence: US)
  Receive Date: 20130823
  Receipt Date: 20130823
  Transmission Date: 20140515
  Serious: No
  Sender: FDA-Public Use
  Company Number: US-BRISTOL-MYERS SQUIBB COMPANY-16946279

PATIENT
  Age: 68 Year
  Sex: Male
  Weight: 83.9 kg

DRUGS (4)
  1. SPRYCEL [Suspect]
     Indication: CHRONIC MYELOID LEUKAEMIA
     Dosage: STRENGTH:50MG AND 20MG
     Route: 048
     Dates: start: 20080612
  2. PLAVIX [Concomitant]
  3. METOPROLOL [Concomitant]
  4. LIPITOR [Concomitant]

REACTIONS (1)
  - Pleural effusion [Not Recovered/Not Resolved]
